FAERS Safety Report 14867795 (Version 2)
Quarter: 2018Q2

REPORT INFORMATION
  Report Type: Report from Study
  Country: None (occurrence: HU)
  Receive Date: 20180509
  Receipt Date: 20180523
  Transmission Date: 20180711
  Serious: Yes (Death)
  Sender: FDA-Public Use
  Company Number: HU-ABBVIE-18K-076-2349072-00

PATIENT
  Age: 87 Year
  Sex: Female
  Weight: 42 kg

DRUGS (2)
  1. MIRVEDOL [Concomitant]
     Indication: DEPRESSION
     Dosage: 2 TABLETS IN EVENING
     Route: 048
     Dates: start: 201611
  2. DUODOPA [Suspect]
     Active Substance: CARBIDOPA\LEVODOPA
     Indication: PARKINSON^S DISEASE
     Dosage: MORNING DOSE 2.3ML; CONTINUOUS DOSE 1.1ML/H;EXTRA DOSE 0.3ML
     Route: 050
     Dates: start: 20141018

REACTIONS (4)
  - General physical health deterioration [Fatal]
  - Cardiac failure [Fatal]
  - Asthenia [Fatal]
  - Decreased appetite [Fatal]

NARRATIVE: CASE EVENT DATE: 201804
